FAERS Safety Report 11430123 (Version 1)
Quarter: 2015Q3

REPORT INFORMATION
  Report Type: Report from Study
  Country: AR (occurrence: AR)
  Receive Date: 20150828
  Receipt Date: 20150828
  Transmission Date: 20151125
  Serious: Yes (Death, Hospitalization, Other)
  Sender: FDA-Public Use
  Company Number: AR-BRISTOL-MYERS SQUIBB COMPANY-BMS-2015-055123

PATIENT
  Age: 66 Year
  Sex: Female

DRUGS (2)
  1. IXABEPILONE [Suspect]
     Active Substance: IXABEPILONE
     Indication: PRODUCT USED FOR UNKNOWN INDICATION
     Dosage: 45 MG, Q3WK
     Route: 042
     Dates: start: 20150722, end: 20150821
  2. IXABEPILONE [Suspect]
     Active Substance: IXABEPILONE
     Dosage: 45 MG, UNK
     Route: 042
     Dates: start: 20150722

REACTIONS (2)
  - Cardiac failure [Not Recovered/Not Resolved]
  - Death [Fatal]

NARRATIVE: CASE EVENT DATE: 20150811
